FAERS Safety Report 11065897 (Version 1)
Quarter: 2015Q2

REPORT INFORMATION
  Report Type: Spontaneous
  Country: US (occurrence: None)
  Receive Date: 20150423
  Receipt Date: 20150423
  Transmission Date: 20150821
  Serious: Yes (Other)
  Sender: FDA-Public Use
  Company Number: US-H14001-15-00579

PATIENT
  Age: 61 Year
  Sex: Male

DRUGS (2)
  1. DIGOXIN (DIGOXIN) (UNKNOWN) (DIGOXIN) [Suspect]
     Active Substance: DIGOXIN
     Indication: PRODUCT USED FOR UNKNOWN INDICATION
  2. SPIRONOLACTONE (SPIRONOLACTONE) [Suspect]
     Active Substance: SPIRONOLACTONE
     Indication: PRODUCT USED FOR UNKNOWN INDICATION

REACTIONS (1)
  - Breast hyperplasia [None]
